FAERS Safety Report 4631644-X (Version None)
Quarter: 2005Q2

REPORT INFORMATION
  Report Type: 
  Country: None (occurrence: None)
  Receive Date: 20050407
  Receipt Date: 20050325
  Transmission Date: 20051028
  Serious: Yes (Hospitalization)
  Sender: FDA-Public Use
  Company Number: 2005049624

PATIENT
  Sex: Female
  Weight: 2.65 kg

DRUGS (6)
  1. HALCION [Suspect]
     Indication: DEPRESSION
  2. ETIZOLAM (ETIZOLAM) [Suspect]
     Indication: DEPRESSION
  3. NITRAZEPAM [Suspect]
     Indication: DEPRESSION
  4. LORAZEPAM [Suspect]
     Indication: DEPRESSION
  5. LEVOMEPROMAZINE (LEVOMEPROMAZINE) [Suspect]
     Indication: DEPRESSION
  6. ZOLPIDEM TARTRATE [Suspect]
     Indication: DEPRESSION

REACTIONS (6)
  - DEHYDRATION [None]
  - DRUG EXPOSURE DURING PREGNANCY [None]
  - DRUG WITHDRAWAL SYNDROME [None]
  - FEEDING DISORDER [None]
  - IRRITABILITY [None]
  - VOMITING [None]
